FAERS Safety Report 9603203 (Version 3)
Quarter: 2013Q4

REPORT INFORMATION
  Report Type: Spontaneous
  Country: JP (occurrence: JP)
  Receive Date: 20131007
  Receipt Date: 20131206
  Transmission Date: 20140711
  Serious: Yes (Other)
  Sender: FDA-Public Use
  Company Number: JP-ROCHE-1285489

PATIENT
  Age: 60 Year
  Sex: Female

DRUGS (2)
  1. LUCENTIS [Suspect]
     Indication: AGE-RELATED MACULAR DEGENERATION
     Route: 050
     Dates: start: 20130718
  2. VOLTAREN [Concomitant]
     Route: 048

REACTIONS (1)
  - Papilloedema [Unknown]
